FAERS Safety Report 4586556-7 (Version None)
Quarter: 2005Q1

REPORT INFORMATION
  Report Type: 
  Country: None (occurrence: None)
  Receive Date: 20050218
  Receipt Date: 20040324
  Transmission Date: 20050727
  Serious: Yes (Other)
  Sender: FDA-Public Use
  Company Number: US-BRISTOL-MYERS SQUIBB COMPANY-12541207

PATIENT
  Age: 66 Year
  Sex: Female
  Weight: 74 kg

DRUGS (7)
  1. CARBOPLATIN [Suspect]
     Indication: ENDOMETRIAL CANCER
     Dosage: THERAPY DATES: 27-DEC-2003 TO 16-MAR-2004 WITH 250 CC NORMAL SALINE
     Route: 042
     Dates: start: 20040316, end: 20040316
  2. TAXOL [Suspect]
     Indication: ENDOMETRIAL CANCER
     Dosage: INFUSION INTERVAL: 1 HOUR
     Route: 042
     Dates: start: 20040316, end: 20040316
  3. BENADRYL [Concomitant]
     Indication: PREMEDICATION
     Route: 042
     Dates: start: 20040316, end: 20040316
  4. DECADRON [Concomitant]
     Indication: PREMEDICATION
     Dosage: 20 MG NIGHT BEFORE + 20 MG MORNING OF INFUSION
     Route: 048
     Dates: start: 20040315, end: 20040316
  5. ANZEMET [Concomitant]
     Indication: PREMEDICATION
     Dates: start: 20040316, end: 20040316
  6. CIMETIDINE [Concomitant]
     Indication: PREMEDICATION
     Dates: start: 20040316, end: 20040316
  7. PROCRIT [Concomitant]
     Dosage: DOSAGE: 60,000 UNITS

REACTIONS (2)
  - HYPERSENSITIVITY [None]
  - RASH ERYTHEMATOUS [None]
